FAERS Safety Report 6307760-3 (Version None)
Quarter: 2009Q3

REPORT INFORMATION
  Report Type: 
  Country: None (occurrence: None)
  Receive Date: 20090812
  Receipt Date: 20090812
  Transmission Date: 20100115
  Serious: Yes (Other)
  Sender: FDA-Public Use
  Company Number: None

PATIENT
  Age: 50 Year
  Sex: Male
  Weight: 63.5036 kg

DRUGS (2)
  1. AMBIEN [Suspect]
     Indication: KNEE ARTHROPLASTY
     Dosage: 1 AT BEDTIME
     Dates: start: 20060125, end: 20060206
  2. AMBIEN [Suspect]
     Indication: RESTLESS LEGS SYNDROME
     Dosage: 1 AT BEDTIME
     Dates: start: 20060125, end: 20060206

REACTIONS (4)
  - DYSPNOEA [None]
  - PANIC ATTACK [None]
  - PHOTOPSIA [None]
  - THROAT TIGHTNESS [None]
